FAERS Safety Report 5895900-X (Version None)
Quarter: 2008Q3

REPORT INFORMATION
  Report Type: 
  Country: None (occurrence: None)
  Receive Date: 20080924
  Receipt Date: 20080910
  Transmission Date: 20090109
  Serious: Yes (Hospitalization, Other)
  Sender: FDA-Public Use
  Company Number: TR-ELI_LILLY_AND_COMPANY-TR200802005766

PATIENT
  Sex: Female
  Weight: 68 kg

DRUGS (7)
  1. HUMALOG [Suspect]
     Indication: DIABETES MELLITUS
     Dosage: 22 IU EACH MORNING
     Route: 058
     Dates: start: 20050101
  2. HUMALOG [Suspect]
     Dosage: 12 IU, NOON
     Route: 058
     Dates: start: 20050101
  3. HUMALOG [Suspect]
     Dosage: 20 IU, EACH EVENING
     Route: 058
     Dates: start: 20050101
  4. HUMALOG [Suspect]
     Dosage: 35 U, EACH MORNING
  5. HUMALOG [Suspect]
     Dosage: 25 U, OTHER ( AT NOON)
  6. HUMALOG [Suspect]
     Dosage: 25 U, EACH EVENING
  7. ANTIBACTERIALS FOR SYSTEMIC USE [Concomitant]
     Indication: BACTERIAL INFECTION
     Dosage: UNK, DAILY (1/D)

REACTIONS (8)
  - CHOLECYSTOSTOMY [None]
  - DEPRESSED MOOD [None]
  - DIABETES MELLITUS INADEQUATE CONTROL [None]
  - DRUG EFFECT DECREASED [None]
  - ECZEMA [None]
  - INJECTION SITE HAEMORRHAGE [None]
  - SHOCK HYPOGLYCAEMIC [None]
  - STRESS [None]
